FAERS Safety Report 5742820-7 (Version None)
Quarter: 2008Q2

REPORT INFORMATION
  Report Type: 
  Country: None (occurrence: None)
  Receive Date: 20080515
  Receipt Date: 20080515
  Transmission Date: 20081010
  Serious: Yes (Other)
  Sender: FDA-Public Use
  Company Number: None

PATIENT
  Age: 47 Year
  Sex: Female
  Weight: 108.8633 kg

DRUGS (2)
  1. WARFARIN SODIUM [Suspect]
     Indication: EMBOLIC STROKE
     Dosage: 20KMG DAILY PO
     Route: 048
     Dates: start: 20080425, end: 20080508
  2. COUMADIN [Suspect]
     Dosage: 20MKG DAILY PO
     Route: 048
     Dates: start: 20080509, end: 20080514

REACTIONS (3)
  - DRUG INEFFECTIVE [None]
  - PROTHROMBIN TIME SHORTENED [None]
  - THERAPEUTIC RESPONSE UNEXPECTED WITH DRUG SUBSTITUTION [None]
